FAERS Safety Report 9618655 (Version 1)
Quarter: 2013Q4

REPORT INFORMATION
  Report Type: Spontaneous
  Country: US (occurrence: US)
  Receive Date: 20131014
  Receipt Date: 20131014
  Transmission Date: 20140711
  Serious: No
  Sender: FDA-Public Use
  Company Number: US-PFIZER INC-2013292737

PATIENT
  Age: 38 Year
  Sex: Female
  Weight: 61.22 kg

DRUGS (2)
  1. CHANTIX [Suspect]
     Indication: SMOKING CESSATION THERAPY
     Dosage: 0.5 MG, 1X/DAY
     Route: 048
     Dates: start: 201310, end: 201310
  2. CHANTIX [Suspect]
     Dosage: 0.5 MG, 2X/DAY
     Route: 048
     Dates: start: 201310, end: 20131009

REACTIONS (4)
  - Insomnia [Unknown]
  - Insomnia [Unknown]
  - Abnormal dreams [Unknown]
  - Back pain [Unknown]
